FAERS Safety Report 7972511-3 (Version None)
Quarter: 2011Q4

REPORT INFORMATION
  Report Type: 
  Country: None (occurrence: None)
  Receive Date: 20111122
  Receipt Date: 20110628
  Transmission Date: 20120403
  Serious: No
  Sender: FDA-Public Use
  Company Number: PHHY2011US39718

PATIENT
  Age: 53 Year
  Sex: Female

DRUGS (2)
  1. GILENYA [Suspect]
     Indication: RELAPSING-REMITTING MULTIPLE SCLEROSIS
     Dosage: 0.5 MG, QD, ORAL, 0.5 MG, ONE PER DAY, ORAL
     Route: 048
     Dates: start: 20110318
  2. GILENYA [Suspect]
     Indication: RELAPSING-REMITTING MULTIPLE SCLEROSIS
     Dosage: 0.5 MG, QD, ORAL, 0.5 MG, ONE PER DAY, ORAL
     Route: 048
     Dates: start: 20110505, end: 20110628

REACTIONS (3)
  - DIARRHOEA [None]
  - BLOOD PRESSURE DECREASED [None]
  - HEADACHE [None]
